FAERS Safety Report 5391821-X (Version None)
Quarter: 2007Q3

REPORT INFORMATION
  Report Type: 
  Country: None (occurrence: None)
  Receive Date: 20070718
  Receipt Date: 20070709
  Transmission Date: 20080115
  Serious: Yes (Other)
  Sender: FDA-Public Use
  Company Number: 2006300118

PATIENT
  Sex: Female
  Weight: 56.2 kg

DRUGS (12)
  1. ROGAINE [Suspect]
     Indication: ALOPECIA
     Dosage: 1 ML TWICE DAILY (1 ML, 2 IN 1 D), TOPICAL
     Route: 061
     Dates: start: 20020401
  2. ROGAINE [Suspect]
  3. ROGAINE [Suspect]
  4. COUMADIN [Concomitant]
  5. IRON (IRON) [Concomitant]
  6. VITAMIN C (VITAMIN C) [Concomitant]
  7. CLACIUM (CALCIUM) [Concomitant]
  8. PREMARIN [Concomitant]
  9. FOSAMAX [Concomitant]
  10. DICLOFENAC (DICLOFENAC) [Concomitant]
  11. DRUG, UNSPECIFIED (DRUGS, UNSPECIFIED0 [Concomitant]
  12. CILICAINE (BENZYLPENICILLIN PROCAINE) [Concomitant]

REACTIONS (9)
  - ALOPECIA [None]
  - ARTHRALGIA [None]
  - CONDITION AGGRAVATED [None]
  - DANDRUFF [None]
  - DISCOMFORT [None]
  - HIP ARTHROPLASTY [None]
  - PHARMACEUTICAL PRODUCT COMPLAINT [None]
  - PRURITUS [None]
  - STRESS [None]
